FAERS Safety Report 8347791-5 (Version None)
Quarter: 2012Q2

REPORT INFORMATION
  Report Type: 
  Country: None (occurrence: None)
  Receive Date: 20120509
  Receipt Date: 20120502
  Transmission Date: 20120825
  Serious: Yes (Hospitalization, Congenital Anomaly)
  Sender: FDA-Public Use
  Company Number: US-GLAXOSMITHKLINE-A0951259A

PATIENT
  Sex: Male
  Weight: 2.2 kg

DRUGS (8)
  1. VITAMIN AND MINERAL PRENATAL SUPPLEMENT W/ FOLIC ACID CAP [Concomitant]
  2. IRON SULFATETHIAMIN COMPOUND TAB [Concomitant]
  3. FIORICET [Concomitant]
     Dates: start: 20040712
  4. PAXIL CR [Suspect]
     Indication: DEPRESSION
     Route: 064
  5. REGLAN [Concomitant]
  6. ACETAMINOPHEN [Concomitant]
  7. ZANTAC [Concomitant]
  8. PAROXETINE HCL [Suspect]
     Indication: DEPRESSION
     Route: 064

REACTIONS (5)
  - VENTRICULAR SEPTAL DEFECT [None]
  - ATRIAL SEPTAL DEFECT [None]
  - FOETAL EXPOSURE DURING PREGNANCY [None]
  - CONGENITAL AORTIC VALVE INCOMPETENCE [None]
  - COARCTATION OF THE AORTA [None]
